FAERS Safety Report 9637802 (Version 1)
Quarter: 2013Q4

REPORT INFORMATION
  Report Type: Spontaneous
  Country: CH (occurrence: CH)
  Receive Date: 20131022
  Receipt Date: 20131022
  Transmission Date: 20140711
  Serious: Yes (Hospitalization)
  Sender: FDA-Public Use
  Company Number: CH-BAYER-2013-124140

PATIENT
  Age: 65 Year
  Sex: Male
  Weight: 67 kg

DRUGS (6)
  1. ASPIRIN CARDIO [Suspect]
     Dosage: 100 MG, QD
     Route: 048
  2. MARCOUMAR [Suspect]
     Dosage: 3 MG, UNK
     Route: 048
     Dates: end: 20130803
  3. BILOL [Concomitant]
     Dosage: 2.5 MG, QD
     Route: 048
     Dates: end: 20130803
  4. PROCORALAN [Concomitant]
     Dosage: 5 MG, QD
     Route: 048
  5. LESCOL [Concomitant]
     Dosage: 80 MG, QD
  6. PRADIF T [Concomitant]
     Dosage: 0.4 MG, QD
     Route: 048

REACTIONS (4)
  - Anaemia [Recovering/Resolving]
  - Asthenia [Recovering/Resolving]
  - Presyncope [Recovered/Resolved]
  - International normalised ratio increased [Recovered/Resolved]
